FAERS Safety Report 7840819-8 (Version None)
Quarter: 2011Q4

REPORT INFORMATION
  Report Type: 
  Country: None (occurrence: None)
  Receive Date: 20111021
  Receipt Date: 20111021
  Transmission Date: 20120403
  Serious: Yes (Hospitalization)
  Sender: FDA-Public Use
  Company Number: None

PATIENT
  Sex: Male
  Weight: 63.6 kg

DRUGS (1)
  1. VIVITROL [Suspect]
     Indication: DRUG DEPENDENCE
     Dates: start: 20100308, end: 20100813

REACTIONS (5)
  - ARTHRALGIA [None]
  - FALL [None]
  - HEADACHE [None]
  - JOINT INJURY [None]
  - HEAD INJURY [None]
